FAERS Safety Report 6233661-5 (Version None)
Quarter: 2009Q2

REPORT INFORMATION
  Report Type: 
  Country: None (occurrence: None)
  Receive Date: 20090617
  Receipt Date: 20090604
  Transmission Date: 20091009
  Serious: Yes (Hospitalization)
  Sender: FDA-Public Use
  Company Number: IT-GENENTECH-283398

PATIENT
  Sex: Male

DRUGS (3)
  1. AVASTIN [Suspect]
     Indication: DRUG USE FOR UNKNOWN INDICATION
     Dosage: 700 MG, 2/WEEK
     Route: 042
     Dates: start: 20081218
  2. IRINOTECAN HCL [Suspect]
     Indication: DRUG USE FOR UNKNOWN INDICATION
     Dosage: 595 MG, 2/WEEK
     Route: 042
     Dates: start: 20081218
  3. IRINOTECAN HCL [Suspect]
     Dosage: 200 MG, 2/WEEK
     Route: 042

REACTIONS (1)
  - CONVULSION [None]
